FAERS Safety Report 7111409-X (Version None)
Quarter: 2010Q4

REPORT INFORMATION
  Report Type: 
  Country: None (occurrence: None)
  Receive Date: 20101118
  Receipt Date: 20101111
  Transmission Date: 20110411
  Serious: Yes (Hospitalization)
  Sender: FDA-Public Use
  Company Number: JP-PFIZER INC-2010144197

PATIENT
  Age: 35 Year
  Sex: Female

DRUGS (2)
  1. ZITHROMAC SR [Suspect]
     Route: 048
  2. VALPROATE SODIUM [Concomitant]

REACTIONS (3)
  - ABDOMINAL PAIN [None]
  - DIARRHOEA [None]
  - HYPOAESTHESIA [None]
